FAERS Safety Report 8129225-9 (Version None)
Quarter: 2012Q1

REPORT INFORMATION
  Report Type: 
  Country: None (occurrence: None)
  Receive Date: 20120210
  Receipt Date: 20120131
  Transmission Date: 20120608
  Serious: Yes (Hospitalization)
  Sender: FDA-Public Use
  Company Number: NL-MEDIMMUNE-MEDI-0014721

PATIENT
  Sex: Male
  Weight: 4.01 kg

DRUGS (1)
  1. SYNAGIS [Suspect]
     Indication: PREMATURE BABY
     Route: 030
     Dates: start: 20111104, end: 20120102

REACTIONS (2)
  - DYSPNOEA [None]
  - BREATH SOUNDS ABNORMAL [None]
